FAERS Safety Report 9423304 (Version 2)
Quarter: 2013Q4

REPORT INFORMATION
  Report Type: Spontaneous
  Country: US (occurrence: US)
  Receive Date: 20130726
  Receipt Date: 20131002
  Transmission Date: 20140711
  Serious: Yes (Hospitalization, Disabling, Other)
  Sender: FDA-Public Use
  Company Number: US-BAYER-2013-087337

PATIENT
  Age: 32 Year
  Sex: Female
  Weight: 65.31 kg

DRUGS (3)
  1. YASMIN [Suspect]
  2. YAZ [Suspect]
  3. ZYRTEC [Concomitant]

REACTIONS (8)
  - Thrombosis [None]
  - Pain [None]
  - Injury [None]
  - Deep vein thrombosis [None]
  - Emotional distress [None]
  - Pain [None]
  - Anxiety [None]
  - Fear of death [None]
